FAERS Safety Report 17856058 (Version 6)
Quarter: 2020Q3

REPORT INFORMATION
  Report Type: Spontaneous
  Country: US (occurrence: US)
  Receive Date: 20200603
  Receipt Date: 20200821
  Transmission Date: 20201103
  Serious: No
  Sender: FDA-Public Use
  Company Number: US-PFIZER INC-2020208282

PATIENT
  Age: 7 Year
  Sex: Female
  Weight: 20.4 kg

DRUGS (1)
  1. GENOTROPIN [Suspect]
     Active Substance: SOMATROPIN
     Indication: GROWTH HORMONE DEFICIENCY
     Dosage: 0.8 MG, 1X/DAY (0.8MG INJECTION NIGHTLY)

REACTIONS (3)
  - Wrong technique in device usage process [Unknown]
  - Poor quality device used [Unknown]
  - Product dose omission issue [Unknown]
